FAERS Safety Report 6781937-5 (Version None)
Quarter: 2010Q2

REPORT INFORMATION
  Report Type: 
  Country: None (occurrence: None)
  Receive Date: 20100621
  Receipt Date: 20100609
  Transmission Date: 20101027
  Serious: Yes (Hospitalization, Other)
  Sender: FDA-Public Use
  Company Number: US-ELI_LILLY_AND_COMPANY-US201006003487

PATIENT
  Sex: Female

DRUGS (2)
  1. EFFIENT [Suspect]
  2. PLAVIX [Concomitant]

REACTIONS (1)
  - THROMBOSIS [None]
